FAERS Safety Report 5502441-8 (Version None)
Quarter: 2007Q4

REPORT INFORMATION
  Report Type: 
  Country: None (occurrence: None)
  Receive Date: 20071030
  Receipt Date: 20071018
  Transmission Date: 20080405
  Serious: Yes (Other)
  Sender: FDA-Public Use
  Company Number: FR-PFIZER INC-2007080019

PATIENT
  Sex: Female
  Weight: 50 kg

DRUGS (2)
  1. CHAMPIX [Suspect]
     Indication: SMOKING CESSATION THERAPY
     Route: 048
     Dates: start: 20070312, end: 20070322
  2. LAMICTAL [Concomitant]
     Indication: EPILEPSY
     Dosage: DAILY DOSE:200MG

REACTIONS (1)
  - CONVULSION [None]
